FAERS Safety Report 9759520 (Version 2)
Quarter: 2014Q1

REPORT INFORMATION
  Report Type: Report from Study
  Country: DE (occurrence: CH)
  Receive Date: 20131216
  Receipt Date: 20140225
  Transmission Date: 20141002
  Serious: Yes (Hospitalization)
  Sender: FDA-Public Use
  Company Number: CH-009507513-1312CHE004965

PATIENT
  Sex: 0

DRUGS (2)
  1. RIBAVIRIN [Suspect]
     Indication: HEPATITIS C
     Dosage: WEIGHT BASED FOR 16 WEEKS.
     Route: 048
  2. FALDAPREVIR [Suspect]
     Indication: HEPATITIS C
     Dosage: 120 MG, QD

REACTIONS (1)
  - Dehydration [Unknown]
